FAERS Safety Report 4919455-9 (Version None)
Quarter: 2006Q1

REPORT INFORMATION
  Report Type: 
  Country: None (occurrence: None)
  Receive Date: 20060222
  Receipt Date: 20050930
  Transmission Date: 20060701
  Serious: Yes (Hospitalization, Other)
  Sender: FDA-Public Use
  Company Number: US-MERCK-0510USA01036

PATIENT
  Age: 58 Year
  Sex: Female
  Weight: 88 kg

DRUGS (4)
  1. VIOXX [Suspect]
     Indication: INFLAMMATION
     Route: 048
     Dates: start: 20020104, end: 20050222
  2. VIOXX [Suspect]
     Indication: ARTHRALGIA
     Route: 048
     Dates: start: 20020104, end: 20050222
  3. ACETAMINOPHEN AND HYDROCODONE BITARTRATE [Concomitant]
     Route: 065
     Dates: start: 20020104
  4. PERCOCET [Concomitant]
     Route: 065

REACTIONS (11)
  - ACUTE MYOCARDIAL INFARCTION [None]
  - ANGINA PECTORIS [None]
  - ANGIOPATHY [None]
  - ARRHYTHMIA [None]
  - CARDIOVASCULAR DISORDER [None]
  - CEREBROVASCULAR ACCIDENT [None]
  - CORONARY ARTERY DISEASE [None]
  - GASTROOESOPHAGEAL REFLUX DISEASE [None]
  - ORGAN FAILURE [None]
  - PULMONARY EMBOLISM [None]
  - THROMBOSIS [None]
